FAERS Safety Report 5762947-3 (Version None)
Quarter: 2008Q2

REPORT INFORMATION
  Report Type: 
  Country: None (occurrence: None)
  Receive Date: 20080609
  Receipt Date: 20080527
  Transmission Date: 20081010
  Serious: Yes (Hospitalization)
  Sender: FDA-Public Use
  Company Number: ES-ROCHE-566730

PATIENT
  Sex: Male
  Weight: 66 kg

DRUGS (6)
  1. CAPECITABINE [Suspect]
     Dosage: ROUTE: VO, FREQUENCY: DAILY 1-14
     Route: 048
     Dates: start: 20070704, end: 20070705
  2. BEVACIZUMAB [Suspect]
     Dosage: DOSAGE FORM REPORTED AS INFUSION
     Route: 042
     Dates: start: 20070704, end: 20070725
  3. OXALIPLATIN [Suspect]
     Dosage: DOSAGE FORM REPORTED AS INFUSION
     Route: 042
     Dates: start: 20070704, end: 20070725
  4. ENALAPRIL MALEATE [Concomitant]
  5. ACARBOSA [Concomitant]
  6. HIDROCLOROTIACIDA [Concomitant]

REACTIONS (1)
  - ATRIAL FLUTTER [None]
